FAERS Safety Report 23521721 (Version 1)
Quarter: 2024Q1

REPORT INFORMATION
  Report Type: Spontaneous
  Country: CN (occurrence: CN)
  Receive Date: 20240214
  Receipt Date: 20240214
  Transmission Date: 20240410
  Serious: Yes (Other)
  Sender: FDA-Public Use
  Company Number: CN-MYLANLABS-2024M1013678

PATIENT
  Age: 90 Year
  Sex: Female

DRUGS (2)
  1. CELEBREX [Suspect]
     Active Substance: CELECOXIB
     Indication: Femur fracture
     Dosage: 0.2 GRAM, BID
     Route: 048
     Dates: start: 20240119, end: 20240126
  2. LINEZOLID [Suspect]
     Active Substance: LINEZOLID
     Indication: Femur fracture
     Dosage: 0.6 GRAM, BID
     Route: 048
     Dates: start: 20240121, end: 20240128

REACTIONS (2)
  - White blood cell count decreased [Recovering/Resolving]
  - Vasculitis [Recovering/Resolving]

NARRATIVE: CASE EVENT DATE: 20240126
